FAERS Safety Report 10085707 (Version 1)
Quarter: 2014Q2

REPORT INFORMATION
  Report Type: Other
  Country: DE (occurrence: DE)
  Receive Date: 20140418
  Receipt Date: 20140418
  Transmission Date: 20141212
  Serious: Yes (Other)
  Sender: FDA-Public Use
  Company Number: DE-SUN PHARMACEUTICAL INDUSTRIES LTD-2014SUN00787

PATIENT
  Age: 88 Year
  Sex: Female
  Weight: 55 kg

DRUGS (7)
  1. OLANZAPIN SUN 10 MG TABLETTEN [Suspect]
     Indication: INCREASED APPETITE
     Dosage: 10 MG, OD
     Route: 048
     Dates: start: 20140218, end: 20140312
  2. OLANZAPIN SUN 10 MG TABLETTEN [Suspect]
     Indication: OFF LABEL USE
  3. PROMETHAZIN [Concomitant]
     Dosage: UNK
     Dates: start: 201307, end: 20140312
  4. CITALOPRAM [Concomitant]
     Indication: DEPRESSION
     Dosage: 40 MG, OD
     Route: 048
     Dates: start: 2011
  5. DESLORADERM [Concomitant]
     Indication: URTICARIA
     Route: 048
  6. EUTHYROX [Concomitant]
     Indication: HYPOTHYROIDISM
     Dosage: 75 MCG, UNK
     Route: 048
     Dates: start: 2011
  7. LACTULOSE [Concomitant]
     Indication: CONSTIPATION
     Dosage: 10 ML, UNK
     Route: 048

REACTIONS (3)
  - Decreased appetite [Recovering/Resolving]
  - Immobile [Recovering/Resolving]
  - Parkinsonism [Recovering/Resolving]
